FAERS Safety Report 17404352 (Version 1)
Quarter: 2020Q1

REPORT INFORMATION
  Report Type: Spontaneous
  Country: AU (occurrence: AU)
  Receive Date: 20200211
  Receipt Date: 20200211
  Transmission Date: 20200409
  Serious: Yes (Hospitalization)
  Sender: FDA-Public Use
  Company Number: AU-PFIZER INC-2020046424

PATIENT
  Age: 51 Year
  Sex: Female

DRUGS (1)
  1. CHAMPIX [Suspect]
     Active Substance: VARENICLINE TARTRATE
     Indication: SMOKING CESSATION THERAPY
     Dosage: 1 DF, 2X/DAY (TOOK ONE WITH BREAKFAST AND ONE WITH EVENING MEAL)

REACTIONS (14)
  - Migraine [Recovered/Resolved]
  - Irritability [Unknown]
  - Restlessness [Unknown]
  - Dyspnoea [Recovering/Resolving]
  - Asthma [Unknown]
  - Frustration tolerance decreased [Unknown]
  - Psychiatric symptom [Unknown]
  - Rash [Unknown]
  - Cold sweat [Unknown]
  - Feeling abnormal [Unknown]
  - Drug hypersensitivity [Recovered/Resolved]
  - Insomnia [Unknown]
  - Fear [Unknown]
  - Abdominal pain [Unknown]
